FAERS Safety Report 6125555-0 (Version None)
Quarter: 2009Q1

REPORT INFORMATION
  Report Type: 
  Country: None (occurrence: None)
  Receive Date: 20090320
  Receipt Date: 20090311
  Transmission Date: 20090719
  Serious: Yes (Other)
  Sender: FDA-Public Use
  Company Number: CA-ASTRAZENECA-2009AC00843

PATIENT
  Sex: Male

DRUGS (1)
  1. LIDOCAINE [Suspect]
     Indication: CANCER PAIN

REACTIONS (2)
  - DRUG ABUSE [None]
  - METHAEMOGLOBINAEMIA [None]
